FAERS Safety Report 8825299 (Version 2)
Quarter: 2014Q3

REPORT INFORMATION
  Report Type: Report from Study
  Country: US (occurrence: US)
  Receive Date: 20121004
  Receipt Date: 20140813
  Transmission Date: 20150326
  Serious: Yes (Death)
  Sender: FDA-Public Use
  Company Number: US-ROCHE-1130763

PATIENT
  Age: 61 Year
  Sex: Male
  Weight: 94.43 kg

DRUGS (18)
  1. SOLU-CORTEF [Suspect]
     Active Substance: HYDROCORTISONE SODIUM SUCCINATE
     Indication: MANTLE CELL LYMPHOMA
     Dosage: INFUSED OVER 1 MIN
     Route: 042
     Dates: start: 20100225
  2. DECADRON [Concomitant]
     Active Substance: DEXAMETHASONE
     Dosage: IN 0.9% SODIUM CHLORIDE 50 ML OVER 20 MINS
     Route: 042
  3. ONCOVIN [Suspect]
     Active Substance: VINCRISTINE SULFATE
     Indication: MANTLE CELL LYMPHOMA
     Route: 042
     Dates: start: 20100224
  4. ALLOPURINOL. [Concomitant]
     Active Substance: ALLOPURINOL
     Route: 065
  5. PROCHLORPERAZINE MALEATE. [Concomitant]
     Active Substance: PROCHLORPERAZINE MALEATE
     Indication: VOMITING
  6. BENADRYL [Concomitant]
     Active Substance: DIPHENHYDRAMINE HYDROCHLORIDE
     Route: 040
     Dates: start: 20100225
  7. OMEPRAZOLE. [Concomitant]
     Active Substance: OMEPRAZOLE
     Route: 065
  8. CYTOXAN [Suspect]
     Active Substance: CYCLOPHOSPHAMIDE
     Indication: MANTLE CELL LYMPHOMA
     Dosage: IN 0.9% SODIUM CHLORIDE 250 ML
     Route: 042
     Dates: start: 20100224
  9. BENADRYL [Concomitant]
     Active Substance: DIPHENHYDRAMINE HYDROCHLORIDE
     Dosage: IN 0.9% SODIUM CHLORIDE 50 ML OVER 20 MINS
     Route: 042
  10. TYLENOL [Concomitant]
     Active Substance: ACETAMINOPHEN
     Route: 048
  11. PREDNISONE. [Concomitant]
     Active Substance: PREDNISONE
     Dosage: TAKEN 2 DAILY X 5 DAYS WITH EACH CHEMO
     Route: 065
  12. BENICAR [Concomitant]
     Active Substance: OLMESARTAN MEDOXOMIL
     Route: 065
  13. PROCHLORPERAZINE MALEATE. [Concomitant]
     Active Substance: PROCHLORPERAZINE MALEATE
     Indication: NAUSEA
     Route: 065
  14. PEPCID [Concomitant]
     Active Substance: FAMOTIDINE
     Dosage: IN 0.9% SODIUM CHLORIDE 50 ML OVER 20 MINS
     Route: 042
  15. RITUXAN [Suspect]
     Active Substance: RITUXIMAB
     Indication: MANTLE CELL LYMPHOMA
     Dosage: IN 0.9PERCENT SODIUM CHLORIDE 500ML
     Route: 042
     Dates: start: 20100225, end: 20100428
  16. BENADRYL [Concomitant]
     Active Substance: DIPHENHYDRAMINE HYDROCHLORIDE
     Route: 042
     Dates: start: 20100225
  17. ZOFRAN [Concomitant]
     Active Substance: ONDANSETRON HYDROCHLORIDE
     Dosage: IN 0.9% SODIUM CHLORIDE 50 ML OVER 20 MINS.
     Route: 042
  18. MEPERIDINE HCL [Concomitant]
     Active Substance: MEPERIDINE HYDROCHLORIDE
     Route: 030

REACTIONS (7)
  - Lymphadenopathy [Recovering/Resolving]
  - Constipation [Recovered/Resolved]
  - Skin infection [Recovering/Resolving]
  - Flushing [Recovering/Resolving]
  - Death [Fatal]
  - Chest discomfort [Recovering/Resolving]
  - Chills [Unknown]

NARRATIVE: CASE EVENT DATE: 20100225
